FAERS Safety Report 8947697 (Version 2)
Quarter: 2012Q4

REPORT INFORMATION
  Report Type: 
  Country: HK (occurrence: HK)
  Receive Date: 20121205
  Receipt Date: 20121210
  Transmission Date: 20130627
  Serious: Yes (Other)
  Sender: FDA-Public Use
  Company Number: PHHY2012HK111049

PATIENT
  Age: 67 Year
  Sex: Male

DRUGS (4)
  1. HALOPERIDOL [Suspect]
     Indication: MUSCLE SPASMS
     Dosage: 3 mg
  2. HALOPERIDOL [Suspect]
     Dosage: 2.5 mg, TID
     Dates: start: 2001
  3. BOTULINUM TOXIN [Concomitant]
  4. LORAZEPAM [Concomitant]

REACTIONS (1)
  - Extrapyramidal disorder [Unknown]
